FAERS Safety Report 26022803 (Version 1)
Quarter: 2025Q4

REPORT INFORMATION
  Report Type: Spontaneous
  Country: CN (occurrence: CN)
  Receive Date: 20251110
  Receipt Date: 20251110
  Transmission Date: 20260118
  Serious: Yes (Other)
  Sender: PURDUE
  Company Number: CN-NAPPMUNDI-GBR-2025-0130202

PATIENT
  Age: 59 Year
  Sex: Male
  Weight: 62 kg

DRUGS (4)
  1. OXYCONTIN [Suspect]
     Active Substance: OXYCODONE HYDROCHLORIDE
     Indication: Cancer pain
     Dosage: 10 MILLIGRAM, BID
     Route: 048
     Dates: start: 20250516, end: 20251103
  2. OXYCONTIN [Suspect]
     Active Substance: OXYCODONE HYDROCHLORIDE
     Indication: Pain in extremity
  3. CELECOXIB [Suspect]
     Active Substance: CELECOXIB
     Indication: Pain in extremity
     Dosage: 0.2 GRAM, BID
     Route: 048
     Dates: start: 20251002, end: 20251103
  4. MORPHINE HYDROCHLORIDE [Suspect]
     Active Substance: MORPHINE HYDROCHLORIDE
     Indication: Pain in extremity
     Dosage: 10 MILLIGRAM, DAILY
     Route: 058
     Dates: start: 20251004, end: 20251103

REACTIONS (5)
  - Pruritus [Unknown]
  - Pain [Unknown]
  - Constipation [Unknown]
  - Electrolyte imbalance [Unknown]
  - Haemoglobin decreased [Unknown]

NARRATIVE: CASE EVENT DATE: 20251004
